FAERS Safety Report 22208979 (Version 1)
Quarter: 2023Q2

REPORT INFORMATION
  Report Type: Spontaneous
  Country: US (occurrence: US)
  Receive Date: 20230413
  Receipt Date: 20230413
  Transmission Date: 20230722
  Serious: No
  Sender: FDA-Public Use
  Company Number: US-PFIZER INC-202300151980

PATIENT
  Age: 42 Year
  Sex: Female

DRUGS (17)
  1. PAXLOVID [Suspect]
     Active Substance: NIRMATRELVIR\RITONAVIR
     Indication: COVID-19 treatment
     Dosage: UNK
     Dates: start: 20230410
  2. NORETHINDRONE [Concomitant]
     Active Substance: NORETHINDRONE
     Dates: start: 20230301
  3. MUCUS RELIEF DM [Concomitant]
     Active Substance: DEXTROMETHORPHAN HYDROBROMIDE\GUAIFENESIN
     Dates: start: 20230408
  4. CETIRIZINE [Concomitant]
     Active Substance: CETIRIZINE HYDROCHLORIDE
     Dosage: UNK
     Dates: start: 20230408, end: 20230410
  5. CETIRIZINE [Concomitant]
     Active Substance: CETIRIZINE HYDROCHLORIDE
     Dates: start: 20230408, end: 20230410
  6. CETIRIZINE [Concomitant]
     Active Substance: CETIRIZINE HYDROCHLORIDE
     Dates: start: 20230201
  7. IBUPROFEN [Concomitant]
     Active Substance: IBUPROFEN
     Dosage: 2 DF
     Dates: start: 20230408, end: 20230410
  8. DIPHENHYDRAMINE [Concomitant]
     Active Substance: DIPHENHYDRAMINE
     Dosage: 2 DF, EVERY NIGHT
     Dates: start: 20230408, end: 20230410
  9. SUPER VITAMIN B COMPLEX [Concomitant]
     Dosage: UNK
     Dates: start: 20230301
  10. HERBALS\TURMERIC [Concomitant]
     Active Substance: HERBALS\TURMERIC
     Dosage: 2 DF, DAILY
     Dates: start: 20230201
  11. GARLIC [Concomitant]
     Active Substance: GARLIC
     Dosage: 1 DF, DAILY
     Dates: start: 20230201, end: 20230407
  12. GARLIC [Concomitant]
     Active Substance: GARLIC
     Dosage: 2 DF, DAILY
     Dates: start: 20230408
  13. CALCIUM MAGNESIUM ZINC PLUS VITAMIN D [Concomitant]
     Dosage: UNK
     Dates: start: 20230301
  14. FISH OIL [Concomitant]
     Active Substance: FISH OIL
     Dosage: UNK
     Dates: start: 20230201
  15. HERBALS\PLANTAGO INDICA WHOLE [Concomitant]
     Active Substance: HERBALS\PLANTAGO INDICA WHOLE
     Dosage: 1 DF, DAILY
     Dates: start: 20230201
  16. VITAMIN D3 [Concomitant]
     Active Substance: CHOLECALCIFEROL
     Dosage: 1 DF, DAILY
     Dates: start: 20230202, end: 20230407
  17. VITAMIN D3 [Concomitant]
     Active Substance: CHOLECALCIFEROL
     Dosage: 2 DF, DAILY
     Dates: start: 20230408

REACTIONS (1)
  - Epistaxis [Recovering/Resolving]

NARRATIVE: CASE EVENT DATE: 20230410
